FAERS Safety Report 5282077-7 (Version None)
Quarter: 2007Q1

REPORT INFORMATION
  Report Type: 
  Country: None (occurrence: None)
  Receive Date: 20070330
  Receipt Date: 20070320
  Transmission Date: 20070707
  Serious: Yes (Hospitalization)
  Sender: FDA-Public Use
  Company Number: US-PFIZER INC-2006026178

PATIENT
  Sex: Female
  Weight: 66.2 kg

DRUGS (13)
  1. SU-011,248 [Suspect]
     Indication: RENAL CELL CARCINOMA STAGE UNSPECIFIED
     Route: 048
  2. OXYCONTIN [Concomitant]
     Route: 048
  3. ARANESP [Concomitant]
     Route: 058
  4. FLUCONAZOLE [Concomitant]
     Route: 048
     Dates: start: 20051130, end: 20060227
  5. PROTONIX [Concomitant]
     Route: 048
     Dates: start: 20051117, end: 20060328
  6. MAALOX FAST BLOCKER [Concomitant]
     Route: 048
  7. PREMARIN [Concomitant]
     Route: 048
  8. CREON [Concomitant]
     Route: 048
  9. AMBIEN [Concomitant]
     Route: 048
  10. AVALIDE [Concomitant]
     Route: 048
  11. ZOLOFT [Concomitant]
     Route: 048
  12. XANAX [Concomitant]
     Route: 048
  13. LORTAB [Concomitant]
     Route: 048

REACTIONS (3)
  - DYSPNOEA [None]
  - PNEUMONIA [None]
  - PYREXIA [None]
